FAERS Safety Report 23402692 (Version 1)
Quarter: 2024Q1

REPORT INFORMATION
  Report Type: Spontaneous
  Country: US (occurrence: US)
  Receive Date: 20240115
  Receipt Date: 20240115
  Transmission Date: 20240410
  Serious: Yes (Other)
  Sender: FDA-Public Use
  Company Number: US-OPELLA-2024OHG001164

PATIENT
  Age: 24 Year
  Sex: Male
  Weight: 73.03 kg

DRUGS (1)
  1. TALC [Suspect]
     Active Substance: TALC
     Indication: Product used for unknown indication

REACTIONS (2)
  - Peritoneal mesothelioma malignant [Unknown]
  - Exposure to chemical pollution [Unknown]
